FAERS Safety Report 14292643 (Version 2)
Quarter: 2018Q1

REPORT INFORMATION
  Report Type: Report from Study
  Country: AU (occurrence: AU)
  Receive Date: 20171215
  Receipt Date: 20180220
  Transmission Date: 20180509
  Serious: Yes (Other)
  Sender: FDA-Public Use
  Company Number: AU-SUNOVION-2017DSP007026

PATIENT
  Sex: Female
  Weight: 94.1 kg

DRUGS (1)
  1. LATUDA [Suspect]
     Active Substance: LURASIDONE HYDROCHLORIDE
     Dosage: 160 MG, QD
     Route: 048
     Dates: start: 20170517

REACTIONS (3)
  - Weight decreased [Unknown]
  - Pre-existing condition improved [Unknown]
  - Gastrectomy [Unknown]
